FAERS Safety Report 4598671-2 (Version None)
Quarter: 2005Q1

REPORT INFORMATION
  Report Type: 
  Country: None (occurrence: None)
  Receive Date: 20050304
  Receipt Date: 20050223
  Transmission Date: 20050727
  Serious: Yes (Other)
  Sender: FDA-Public Use
  Company Number: US-NOVOPROD-242438

PATIENT
  Age: 57 Year
  Sex: Male
  Weight: 129 kg

DRUGS (4)
  1. ACTOS                                   /USA/ [Concomitant]
     Indication: INSULIN-REQUIRING TYPE II DIABETES MELLITUS
  2. ENALAPRIL MALEATE [Concomitant]
     Indication: HYPERTENSION
  3. ASPIRIN [Concomitant]
     Indication: PROPHYLAXIS
  4. NOVOLOG MIX 70/30 [Suspect]
     Indication: INSULIN-REQUIRING TYPE II DIABETES MELLITUS
     Dosage: 50 IU, QD
     Route: 058
     Dates: start: 20040901, end: 20050101

REACTIONS (1)
  - EPISTAXIS [None]
